FAERS Safety Report 18519205 (Version 1)
Quarter: 2020Q4

REPORT INFORMATION
  Report Type: Spontaneous
  Country: US (occurrence: US)
  Receive Date: 20201118
  Receipt Date: 20201118
  Transmission Date: 20210114
  Serious: Yes (Other)
  Sender: FDA-Public Use
  Company Number: US-ASTRAZENECA-2020SF47715

PATIENT
  Sex: Female
  Weight: 158.8 kg

DRUGS (51)
  1. PRILOSEC OTC [Suspect]
     Active Substance: OMEPRAZOLE MAGNESIUM
     Indication: DYSPEPSIA
     Route: 048
     Dates: start: 2006
  2. GLIPIZIDE ER [Concomitant]
     Active Substance: GLIPIZIDE
     Indication: TYPE 2 DIABETES MELLITUS
     Dates: start: 20150909
  3. RANITIDINE. [Concomitant]
     Active Substance: RANITIDINE
     Dates: start: 2007, end: 2020
  4. ASPIRIN. [Concomitant]
     Active Substance: ASPIRIN
  5. FENTANYL. [Concomitant]
     Active Substance: FENTANYL
  6. KLONOPIN [Concomitant]
     Active Substance: CLONAZEPAM
  7. PROZAC [Concomitant]
     Active Substance: FLUOXETINE HYDROCHLORIDE
  8. PRILOSEC [Suspect]
     Active Substance: OMEPRAZOLE MAGNESIUM
     Indication: BARRETT^S OESOPHAGUS
     Route: 048
     Dates: start: 2006
  9. PREVACID [Suspect]
     Active Substance: LANSOPRAZOLE
     Indication: DYSPEPSIA
     Route: 065
     Dates: start: 2007, end: 2017
  10. THYROXINE [Concomitant]
  11. CETIRIZINE [Concomitant]
     Active Substance: CETIRIZINE HYDROCHLORIDE
  12. NITROFURN MONO [Concomitant]
  13. MIDAZOLAM. [Concomitant]
     Active Substance: MIDAZOLAM
  14. MORPHINE [Concomitant]
     Active Substance: MORPHINE
  15. LISINOPRIL. [Concomitant]
     Active Substance: LISINOPRIL
     Indication: HYPERTENSION
     Dates: start: 20150828
  16. FEXOFENADINE [Concomitant]
     Active Substance: FEXOFENADINE HYDROCHLORIDE
  17. CYCLOBENZAPRINE. [Concomitant]
     Active Substance: CYCLOBENZAPRINE
  18. PROPOFOL. [Concomitant]
     Active Substance: PROPOFOL
  19. PREVACID [Suspect]
     Active Substance: LANSOPRAZOLE
     Indication: DYSPEPSIA
     Dosage: GENERIC
     Route: 065
     Dates: start: 2007, end: 2017
  20. IMIPRAMINE [Concomitant]
     Active Substance: IMIPRAMINE
     Indication: DEPRESSION
     Dates: start: 20161021
  21. BYDUREON [Concomitant]
     Active Substance: EXENATIDE
  22. TRIAMT/HCTZ [Concomitant]
     Active Substance: HYDROCHLOROTHIAZIDE\TRIAMTERENE
  23. PHENAZOPYRID [Concomitant]
  24. IBUPROFEN. [Concomitant]
     Active Substance: IBUPROFEN
  25. PRILOSEC [Suspect]
     Active Substance: OMEPRAZOLE MAGNESIUM
     Indication: DYSPEPSIA
     Route: 048
     Dates: start: 2006
  26. PRILOSEC OTC [Suspect]
     Active Substance: OMEPRAZOLE MAGNESIUM
     Indication: BARRETT^S OESOPHAGUS
     Route: 048
     Dates: start: 2006
  27. PREVACID 24 HR [Suspect]
     Active Substance: LANSOPRAZOLE
     Indication: DYSPEPSIA
     Route: 065
     Dates: start: 2007, end: 2017
  28. ONDANSETRON [Concomitant]
     Active Substance: ONDANSETRON
     Indication: NAUSEA
     Dates: start: 20160125
  29. AMOXIC/CLAV [Concomitant]
  30. POLYMYXIN B/TRIMETH [Concomitant]
  31. FLUCONAZOLE. [Concomitant]
     Active Substance: FLUCONAZOLE
  32. VITAMIN D [Concomitant]
     Active Substance: VITAMIN D NOS
  33. DICLOFENAC [Concomitant]
     Active Substance: DICLOFENAC
  34. TRIAMTERENE AND HYDROCHLOROTHIAZIDE [Concomitant]
     Active Substance: HYDROCHLOROTHIAZIDE\TRIAMTERENE
  35. PRILOSEC [Suspect]
     Active Substance: OMEPRAZOLE MAGNESIUM
     Indication: DYSPEPSIA
     Dosage: GENERIC
     Route: 065
     Dates: start: 2006
  36. PRILOSEC [Suspect]
     Active Substance: OMEPRAZOLE MAGNESIUM
     Indication: BARRETT^S OESOPHAGUS
     Dosage: GENERIC
     Route: 065
     Dates: start: 2006
  37. OXYCODONE [Concomitant]
     Active Substance: OXYCODONE
     Indication: ANALGESIC THERAPY
     Dates: start: 20150809
  38. LANTUS SOLOSTAR [Concomitant]
     Active Substance: INSULIN GLARGINE
  39. LORAZEPAM. [Concomitant]
     Active Substance: LORAZEPAM
  40. AZITHROMYCIN ANHYDROUS. [Concomitant]
     Active Substance: AZITHROMYCIN ANHYDROUS
  41. PREDNISONE. [Concomitant]
     Active Substance: PREDNISONE
  42. ALBUTEROL. [Concomitant]
     Active Substance: ALBUTEROL
  43. WELLBUTRIN [Concomitant]
     Active Substance: BUPROPION HYDROCHLORIDE
  44. VICODIN [Concomitant]
     Active Substance: ACETAMINOPHEN\HYDROCODONE BITARTRATE
  45. DARVOCET [Concomitant]
     Active Substance: ACETAMINOPHEN\PROPOXYPHENE HYDROCHLORIDE
  46. FERRITIN [Concomitant]
     Active Substance: FERRITIN
  47. TUMS [Concomitant]
     Active Substance: CALCIUM CARBONATE
     Dates: start: 1998, end: 2002
  48. APIDRA SOLOSTAR [Concomitant]
     Active Substance: INSULIN GLULISINE
  49. ALCOHOL. [Concomitant]
     Active Substance: ALCOHOL
  50. TYLENOL [Concomitant]
     Active Substance: ACETAMINOPHEN
  51. CODEINE [Concomitant]
     Active Substance: CODEINE

REACTIONS (2)
  - Renal failure [Recovered/Resolved]
  - Chronic kidney disease [Unknown]
